FAERS Safety Report 18542485 (Version 3)
Quarter: 2020Q4

REPORT INFORMATION
  Report Type: Spontaneous
  Country: US (occurrence: US)
  Receive Date: 20201125
  Receipt Date: 20201202
  Transmission Date: 20210114
  Serious: Yes (Other)
  Sender: FDA-Public Use
  Company Number: US-NOVEN PHARMACEUTICALS, INC.-2020US007372

PATIENT
  Sex: Female
  Weight: 77.1 kg

DRUGS (7)
  1. ESTRADIOL. [Suspect]
     Active Substance: ESTRADIOL
     Dosage: 0.1 MG/DAY, CHANGED EVERY 3 DAYS FOR 1 MONTH
     Route: 062
     Dates: start: 2020
  2. ESTRADIOL. [Suspect]
     Active Substance: ESTRADIOL
     Indication: OESTROGEN REPLACEMENT THERAPY
     Dosage: 0.05 MG/DAY+0.1 MG/DAY, EACH DOSE CHANGED EVERY 3 DAYS
     Route: 062
     Dates: start: 2020
  3. ESTRADIOL. [Suspect]
     Active Substance: ESTRADIOL
     Dosage: 0.025MG/DAY+0.1MG/DAY, CHANGED EVERY 3 DAYS FOR 1 MONTH
     Route: 062
     Dates: start: 2020
  4. ESTRADIOL. [Suspect]
     Active Substance: ESTRADIOL
     Dosage: 0.05 MG/DAY, CHANGED EVERY 3 DAYS
     Route: 062
     Dates: end: 202003
  5. ESTRADIOL. [Suspect]
     Active Substance: ESTRADIOL
     Dosage: 0.1MG,UNK
     Route: 062
     Dates: start: 2019
  6. ESTRADIOL. [Suspect]
     Active Substance: ESTRADIOL
     Dosage: 0.075 MG/DAY, CHANGED EVERY3 DAYS FOR ABOUT 3 WEEKS
     Route: 062
     Dates: start: 202003
  7. SYNTHROID [Concomitant]
     Active Substance: LEVOTHYROXINE SODIUM
     Indication: PRODUCT USED FOR UNKNOWN INDICATION

REACTIONS (4)
  - Hysterosalpingo-oophorectomy [Recovered/Resolved]
  - Menopausal symptoms [Unknown]
  - Drug ineffective [Unknown]
  - Off label use [Not Recovered/Not Resolved]

NARRATIVE: CASE EVENT DATE: 2020
